FAERS Safety Report 5579360-4 (Version None)
Quarter: 2008Q1

REPORT INFORMATION
  Report Type: 
  Country: None (occurrence: None)
  Receive Date: 20080102
  Receipt Date: 20071220
  Transmission Date: 20080703
  Serious: Yes (Life-Threatening, Other)
  Sender: FDA-Public Use
  Company Number: IT-ELI_LILLY_AND_COMPANY-IT200707001386

PATIENT
  Sex: Male

DRUGS (20)
  1. XIGRIS [Suspect]
     Indication: MULTI-ORGAN FAILURE
     Dosage: 50 MG, DAILY (1/D)
     Route: 042
     Dates: start: 20070626, end: 20070630
  2. HEPARIN CALCIUM [Concomitant]
     Indication: PROPHYLAXIS
     Dates: start: 20070619, end: 20070630
  3. PROPOFOL [Concomitant]
     Route: 042
  4. LEVOFLOXACIN [Concomitant]
     Dosage: 500 MG, UNK
     Route: 042
  5. CILASTATIN W/IMIPENEM [Concomitant]
     Dosage: 2 G, UNK
     Route: 042
  6. ULTIVA [Concomitant]
     Route: 042
  7. VANCOCINA A.P. [Concomitant]
     Route: 042
  8. IPNOVEL [Concomitant]
     Route: 042
  9. FENTANYL-HAMELN [Concomitant]
     Route: 042
  10. OMEPRAZOLE [Concomitant]
     Dosage: 80 MG, UNK
     Route: 042
  11. PLASIL [Concomitant]
     Dosage: 30 MG, UNK
     Route: 042
  12. DEFLAMON [Concomitant]
     Dosage: 2 G, UNK
     Route: 042
  13. INTRALIPID /00272201/ [Concomitant]
  14. CERNEVIT-12 [Concomitant]
     Route: 042
  15. FLEBOCORTID [Concomitant]
     Dosage: 300 MG, UNK
     Route: 042
  16. RIFADIN [Concomitant]
     Dosage: 600 MG, UNK
     Route: 042
  17. FLUIMUCIL [Concomitant]
  18. BETABIOPTAL [Concomitant]
     Dosage: 1 GTT, UNK
     Route: 047
  19. BETABIOPTAL [Concomitant]
     Route: 047
  20. DIFLUCAN [Concomitant]
     Dosage: 400 MG, UNK
     Route: 042

REACTIONS (2)
  - HAEMORRHAGE [None]
  - THROMBOCYTOPENIA [None]
